FAERS Safety Report 4497691-6 (Version None)
Quarter: 2004Q4

REPORT INFORMATION
  Report Type: 
  Country: None (occurrence: None)
  Receive Date: 20041108
  Receipt Date: 20041020
  Transmission Date: 20050328
  Serious: Yes (Disabling, Congenital Anomaly)
  Sender: FDA-Public Use
  Company Number: GB-JNJFOC-20041006710

PATIENT

DRUGS (2)
  1. RISPERDAL [Suspect]
     Indication: HYPOMANIA
     Route: 015
  2. HALOPERIDOL [Concomitant]
     Indication: HYPOMANIA

REACTIONS (3)
  - DRUG EXPOSURE DURING PREGNANCY [None]
  - FOETAL DISORDER [None]
  - GASTROSCHISIS [None]
